FAERS Safety Report 4340935-1 (Version None)
Quarter: 2004Q2

REPORT INFORMATION
  Report Type: 
  Country: None (occurrence: None)
  Receive Date: 20040413
  Receipt Date: 20040402
  Transmission Date: 20050107
  Serious: Yes (Other)
  Sender: FDA-Public Use
  Company Number: CA-JNJFOC-20040401066

PATIENT

DRUGS (1)
  1. TOPAMAX [Suspect]
     Dosage: 150 MG, 2 IN 1 DAY, ORAL
     Route: 048

REACTIONS (1)
  - RETINOPATHY [None]
